FAERS Safety Report 24634782 (Version 1)
Quarter: 2024Q4

REPORT INFORMATION
  Report Type: Spontaneous
  Country: CH (occurrence: CH)
  Receive Date: 20241119
  Receipt Date: 20241119
  Transmission Date: 20250114
  Serious: Yes (Other)
  Sender: CELLTRION
  Company Number: CH-IQONE_HEALTHCARE_SWITZERLAND_1101001-2024CH026496

PATIENT

DRUGS (1)
  1. INFLIXIMAB [Suspect]
     Active Substance: INFLIXIMAB
     Indication: Colitis ulcerative
     Dosage: 300 MG, AFTER INDUCTION, EVERY 8 WEEKS
     Route: 042
     Dates: start: 202405, end: 202411

REACTIONS (1)
  - Alopecia [Unknown]
